FAERS Safety Report 4687234-6 (Version None)
Quarter: 2005Q2

REPORT INFORMATION
  Report Type: 
  Country: None (occurrence: None)
  Receive Date: 20050606
  Receipt Date: 20050517
  Transmission Date: 20051028
  Serious: Yes (Hospitalization)
  Sender: FDA-Public Use
  Company Number: 2005053739

PATIENT
  Age: 52 Year
  Sex: Female
  Weight: 46 kg

DRUGS (9)
  1. ALPRAZOLAM [Suspect]
     Indication: STOMACH DISCOMFORT
     Dosage: 0.4 MG (0.4 MG, 1 IN 1 D), ORAL
     Route: 048
     Dates: start: 20020902, end: 20020920
  2. PHENYTOIN [Suspect]
     Indication: CONVULSION
     Dosage: SEE IMAGE
     Route: 048
     Dates: start: 20020829, end: 20020830
  3. PHENYTOIN [Suspect]
     Indication: CONVULSION
     Dosage: SEE IMAGE
     Route: 048
     Dates: start: 20020821, end: 20020920
  4. MUCOSTA (REBAMIPIDE) [Concomitant]
  5. SULFABACTAM/AMPICILLIN (AMPICILLIN SODIUM, SULBACTAM SODIUM) [Concomitant]
  6. ALL OTHER THERAPEUTIC PRODUCTS (ALL OTHER THERAPEUTIC PRODUCTS) [Concomitant]
  7. NAUZELIN (DOMPERIDONE) [Concomitant]
  8. CEREKINON (TRIMEBUTINE MALEATE) [Concomitant]
  9. MALFA (ALUMINUM HYDROXIDE/MAGNESIUM HYDROXIDE) [Concomitant]

REACTIONS (3)
  - POSTOPERATIVE INFECTION [None]
  - STOMACH DISCOMFORT [None]
  - TOXIC SKIN ERUPTION [None]
